FAERS Safety Report 25334938 (Version 5)
Quarter: 2025Q3

REPORT INFORMATION
  Report Type: Report from Study
  Country: US (occurrence: US)
  Receive Date: 20250520
  Receipt Date: 20250930
  Transmission Date: 20251021
  Serious: Yes (Hospitalization)
  Sender: TAKEDA
  Company Number: US-TAKEDA-2025TUS046470

PATIENT
  Sex: Female

DRUGS (11)
  1. BRIGATINIB [Suspect]
     Active Substance: BRIGATINIB
     Indication: Meningeal neoplasm
     Dosage: 180 MILLIGRAM, QD
     Dates: start: 20250430
  2. BRIGATINIB [Suspect]
     Active Substance: BRIGATINIB
     Dosage: 180 MILLIGRAM, QD
  3. BACLOFEN [Concomitant]
     Active Substance: BACLOFEN
  4. GABAPENTIN [Concomitant]
     Active Substance: GABAPENTIN
  5. LEVOTHYROXINE [Concomitant]
     Active Substance: LEVOTHYROXINE
  6. LIDOCAINE HYDROCHLORIDE [Concomitant]
     Active Substance: LIDOCAINE HYDROCHLORIDE
     Route: 061
  7. MIRALAX [Concomitant]
     Active Substance: POLYETHYLENE GLYCOL 3350
  8. ONDANSETRON [Concomitant]
     Active Substance: ONDANSETRON
  9. GRANISETRON [Concomitant]
     Active Substance: GRANISETRON
  10. IBUPROFEN [Concomitant]
     Active Substance: IBUPROFEN
  11. TYLENOL [Concomitant]
     Active Substance: ACETAMINOPHEN

REACTIONS (8)
  - Muscle spasticity [Not Recovered/Not Resolved]
  - Fatigue [Not Recovered/Not Resolved]
  - Pain [Not Recovered/Not Resolved]
  - Abdominal pain upper [Unknown]
  - Diarrhoea [Recovered/Resolved]
  - Decreased appetite [Unknown]
  - Nausea [Unknown]
  - Off label use [Not Recovered/Not Resolved]
